FAERS Safety Report 12593868 (Version 1)
Quarter: 2016Q3

REPORT INFORMATION
  Report Type: Spontaneous
  Country: US (occurrence: US)
  Receive Date: 20160726
  Receipt Date: 20160726
  Transmission Date: 20161109
  Serious: Yes (Hospitalization)
  Sender: FDA-Public Use
  Company Number: US-UNITED THERAPEUTICS-UNT-2016-006823

PATIENT
  Age: 68 Year
  Sex: Female
  Weight: 78.91 kg

DRUGS (4)
  1. REMODULIN [Suspect]
     Active Substance: TREPROSTINIL
     Dosage: 0.009 ?G/KG, CONTINUING
     Route: 041
  2. OPSUMIT [Concomitant]
     Active Substance: MACITENTAN
     Indication: PRODUCT USED FOR UNKNOWN INDICATION
  3. REMODULIN [Suspect]
     Active Substance: TREPROSTINIL
     Indication: PULMONARY ARTERIAL HYPERTENSION
     Dosage: 0.022 ?G/KG, CONTINUING
     Route: 041
     Dates: start: 20160422
  4. REMODULIN [Suspect]
     Active Substance: TREPROSTINIL
     Dosage: 0.007 ?G/KG, CONTINUING
     Route: 041

REACTIONS (13)
  - Abdominal pain upper [Recovered/Resolved]
  - Myalgia [Unknown]
  - Asthenia [Unknown]
  - Device issue [Recovered/Resolved]
  - Constipation [Unknown]
  - Drug dose omission [Unknown]
  - Feeling cold [Unknown]
  - Diarrhoea [Unknown]
  - Headache [Recovered/Resolved]
  - Device dislocation [Unknown]
  - Product preparation error [Unknown]
  - Pain in extremity [Unknown]
  - Dizziness [Recovering/Resolving]

NARRATIVE: CASE EVENT DATE: 201604
